FAERS Safety Report 7720384-6 (Version None)
Quarter: 2011Q3

REPORT INFORMATION
  Report Type: 
  Country: None (occurrence: None)
  Receive Date: 20110825
  Receipt Date: 20110808
  Transmission Date: 20111222
  Serious: Yes (Hospitalization, Other)
  Sender: FDA-Public Use
  Company Number: 2011P1006997

PATIENT
  Age: 73 Year
  Sex: Female
  Weight: 61.2356 kg

DRUGS (6)
  1. CALCIUM CARBONATE [Concomitant]
  2. LIPITOR [Concomitant]
  3. CELEXA [Concomitant]
  4. KERAFOAM 42 60GM (NO PREF. NAME) [Suspect]
     Indication: DRY SKIN
     Dosage: HS;TOP
     Dates: start: 20110228, end: 20110331
  5. KERAFOAM 42 60GM (NO PREF. NAME) [Suspect]
     Indication: SKIN FISSURES
     Dosage: HS;TOP
     Dates: start: 20110228, end: 20110331
  6. PRILOSEC [Concomitant]

REACTIONS (9)
  - OPERATIVE HAEMORRHAGE [None]
  - BALANCE DISORDER [None]
  - JOINT RANGE OF MOTION DECREASED [None]
  - FALL [None]
  - HIP FRACTURE [None]
  - OEDEMA [None]
  - PYREXIA [None]
  - HAEMORRHAGIC ANAEMIA [None]
  - HYPERLIPIDAEMIA [None]
